FAERS Safety Report 5219527-8 (Version None)
Quarter: 2007Q1

REPORT INFORMATION
  Report Type: 
  Country: None (occurrence: None)
  Receive Date: 20070125
  Receipt Date: 20070115
  Transmission Date: 20070707
  Serious: Yes (Hospitalization, Other)
  Sender: FDA-Public Use
  Company Number: JP-PFIZER INC-2006143290

PATIENT
  Sex: Female

DRUGS (7)
  1. ZYVOX [Suspect]
     Indication: STAPHYLOCOCCAL INFECTION
     Route: 042
     Dates: start: 20061030, end: 20061103
  2. DEPAS [Concomitant]
     Route: 048
  3. MYSLEE [Concomitant]
     Route: 048
     Dates: start: 20051031
  4. VOLTAREN [Concomitant]
     Dates: start: 20061031, end: 20061103
  5. LOXONIN [Concomitant]
     Route: 048
     Dates: start: 20061101
  6. HABEKACIN [Concomitant]
     Route: 042
     Dates: start: 20061013, end: 20061018
  7. MUCOSTA [Concomitant]
     Route: 048

REACTIONS (3)
  - ANAEMIA [None]
  - DIZZINESS [None]
  - HYPERKALAEMIA [None]
